FAERS Safety Report 4586794-3 (Version None)
Quarter: 2005Q1

REPORT INFORMATION
  Report Type: 
  Country: None (occurrence: None)
  Receive Date: 20050217
  Receipt Date: 20050217
  Transmission Date: 20050727
  Serious: Yes (Other)
  Sender: FDA-Public Use
  Company Number: None

PATIENT
  Age: 56 Year
  Sex: Female
  Weight: 88.4514 kg

DRUGS (1)
  1. CELEBREX [Suspect]
     Indication: ARTHRALGIA
     Dosage: 200MG   1X DAILY  ORAL
     Route: 048
     Dates: start: 20040520, end: 20040606

REACTIONS (2)
  - CONDITION AGGRAVATED [None]
  - HERPES SIMPLEX [None]
